FAERS Safety Report 8180376-2 (Version None)
Quarter: 2012Q1

REPORT INFORMATION
  Report Type: 
  Country: None (occurrence: None)
  Receive Date: 20120302
  Receipt Date: 20120228
  Transmission Date: 20120608
  Serious: Yes (Other)
  Sender: FDA-Public Use
  Company Number: US-PFIZER INC-2012053144

PATIENT
  Sex: Female
  Weight: 68.03 kg

DRUGS (5)
  1. LYRICA [Suspect]
     Dosage: 75 MG, 3X/DAY
     Route: 048
     Dates: start: 20120207
  2. CODEINE [Concomitant]
     Dosage: 60 MG, UNK
  3. ACETAMINOPHEN W/ CODEINE [Concomitant]
     Dosage: 300/30 MG, UNK
  4. LYRICA [Suspect]
     Indication: BACK PAIN
     Dosage: 75 MG, 1X/DAY
     Route: 048
     Dates: start: 20111130, end: 20111201
  5. LYRICA [Suspect]
     Dosage: 75 MG, 2X/DAY
     Route: 048
     Dates: start: 20111201, end: 20120207

REACTIONS (6)
  - RASH PRURITIC [None]
  - BLISTER [None]
  - DRUG INEFFECTIVE [None]
  - INFLAMMATION [None]
  - RASH [None]
  - RASH ERYTHEMATOUS [None]
